FAERS Safety Report 11707634 (Version 2)
Quarter: 2015Q4

REPORT INFORMATION
  Report Type: Spontaneous
  Country: US (occurrence: US)
  Receive Date: 20151104
  Receipt Date: 20151110
  Transmission Date: 20160304
  Serious: No
  Sender: FDA-Public Use
  Company Number: US-ELI_LILLY_AND_COMPANY-US201101004900

PATIENT
  Age: 81 Year
  Sex: Female

DRUGS (3)
  1. FORTEO [Suspect]
     Active Substance: TERIPARATIDE
     Dosage: 20 UG, QD
     Route: 065
  2. FORTEO [Suspect]
     Active Substance: TERIPARATIDE
     Dosage: 20 UG, QD
  3. FORTEO [Suspect]
     Active Substance: TERIPARATIDE
     Indication: OSTEOPOROSIS
     Dosage: 20 UG, QD
     Route: 065

REACTIONS (13)
  - Injection site haemorrhage [Unknown]
  - Viral infection [Not Recovered/Not Resolved]
  - Injection site erythema [Unknown]
  - Bone disorder [Unknown]
  - Food aversion [Unknown]
  - Drug dose omission [Unknown]
  - Joint injury [Unknown]
  - Vomiting [Recovering/Resolving]
  - Medication error [Unknown]
  - Fall [Unknown]
  - Malaise [Unknown]
  - Diarrhoea [Recovering/Resolving]
  - Dry skin [Unknown]

NARRATIVE: CASE EVENT DATE: 20110930
